FAERS Safety Report 5913782-4 (Version None)
Quarter: 2008Q4

REPORT INFORMATION
  Report Type: 
  Country: None (occurrence: None)
  Receive Date: 20081009
  Receipt Date: 20081002
  Transmission Date: 20090506
  Serious: Yes (Death, Hospitalization)
  Sender: FDA-Public Use
  Company Number: AU-ABBOTT-08P-008-0478375-00

PATIENT
  Age: 35 Year
  Sex: Male

DRUGS (1)
  1. HUMIRA [Suspect]
     Indication: PSORIASIS
     Route: 050
     Dates: start: 20080702

REACTIONS (3)
  - DIARRHOEA [None]
  - UNEVALUABLE EVENT [None]
  - VOMITING [None]
